FAERS Safety Report 10514109 (Version 2)
Quarter: 2014Q4

REPORT INFORMATION
  Report Type: Spontaneous
  Country: US (occurrence: US)
  Receive Date: 20141013
  Receipt Date: 20141030
  Transmission Date: 20150528
  Serious: No
  Sender: FDA-Public Use
  Company Number: US-009507513-1410USA002334

PATIENT
  Age: 21 Year
  Sex: Female
  Weight: 79.37 kg

DRUGS (4)
  1. CLARITIN [Suspect]
     Active Substance: LORATADINE
     Indication: RHINORRHOEA
     Dosage: 10 MG, QD
     Route: 048
     Dates: start: 20141002, end: 20141004
  2. CLARITIN [Suspect]
     Active Substance: LORATADINE
     Indication: SNEEZING
  3. CLARITIN [Suspect]
     Active Substance: LORATADINE
     Indication: LACRIMATION INCREASED
  4. CLARITIN [Suspect]
     Active Substance: LORATADINE
     Indication: THROAT IRRITATION

REACTIONS (6)
  - Dyspnoea [Not Recovered/Not Resolved]
  - Abdominal pain upper [Not Recovered/Not Resolved]
  - Upper respiratory tract infection [Unknown]
  - Headache [Not Recovered/Not Resolved]
  - Ocular hyperaemia [Not Recovered/Not Resolved]
  - Skin reaction [Unknown]

NARRATIVE: CASE EVENT DATE: 201410
